FAERS Safety Report 13412577 (Version 1)
Quarter: 2017Q2

REPORT INFORMATION
  Report Type: Spontaneous
  Country: US (occurrence: US)
  Receive Date: 20170406
  Receipt Date: 20170406
  Transmission Date: 20170830
  Serious: No
  Sender: FDA-Public Use
  Company Number: None

PATIENT
  Age: 76 Year
  Sex: Male
  Weight: 81 kg

DRUGS (3)
  1. LISINOPRIL. [Concomitant]
     Active Substance: LISINOPRIL
  2. FLEXERIL [Suspect]
     Active Substance: CYCLOBENZAPRINE HYDROCHLORIDE
     Indication: SPINAL OPERATION
     Route: 048
     Dates: start: 20170328, end: 20170330
  3. HYDROCODONE [Suspect]
     Active Substance: HYDROCODONE
     Indication: PAIN MANAGEMENT
     Route: 048
     Dates: start: 20170328, end: 20170403

REACTIONS (5)
  - Incoherent [None]
  - Muscular weakness [None]
  - Mental status changes [None]
  - Hallucination, visual [None]
  - Fall [None]

NARRATIVE: CASE EVENT DATE: 20170329
